FAERS Safety Report 8960492 (Version 1)
Quarter: 2012Q4

REPORT INFORMATION
  Report Type: Spontaneous
  Country: ES (occurrence: None)
  Receive Date: 20121203
  Receipt Date: 20121203
  Transmission Date: 20130627
  Serious: Yes (Other)
  Sender: FDA-Public Use
  Company Number: 2012RR-62198

PATIENT
  Age: 22 Year
  Sex: Male

DRUGS (17)
  1. VALSARTAN [Suspect]
     Indication: HYPERTENSION
  2. PREDNISONE [Suspect]
     Indication: NEPHROTIC SYNDROME
  3. MYCOPHENOLATE MOFETIL [Suspect]
     Indication: NEPHROTIC SYNDROME
  4. METHYLPREDNISOLONE [Suspect]
     Indication: NEPHROTIC SYNDROME
     Dosage: short course, intravenous
     Route: 042
  5. RITUXIMAB [Suspect]
     Indication: NEPHROTIC SYNDROME
     Dosage: 700 mg/cycle, 2 cycles, unknown
  6. TACROLIMUS [Suspect]
     Indication: NEPHROTIC SYNDROME
  7. QUINAPRIL [Suspect]
     Indication: HYPERTENSION
  8. QUINAPRIL [Suspect]
     Indication: HYPERTENSION
  9. CANDERSATAN [Suspect]
     Indication: HYPERTENSION
  10. ALISKIREN  (ALISKIREN) [Concomitant]
  11. ACENOCOUMAROL (ACENOCOUMACROL) [Concomitant]
  12. VITAMIN B6 (VITAMIN B6) [Concomitant]
  13. VITAMIN B12 (COBALAMIN) [Concomitant]
  14. CALCIUM (CALCIUM) [Concomitant]
  15. CALCITRIOL (CALCITRIOL) [Concomitant]
  16. 25-HYDROXY-VITAMIN D3 (25-HYDROXY-VITAMIN D3) [Concomitant]
  17. PARICALCITOL (PARICALCITOL) [Concomitant]

REACTIONS (1)
  - Bartter^s syndrome [None]
